FAERS Safety Report 5529777-9 (Version None)
Quarter: 2007Q4

REPORT INFORMATION
  Report Type: 
  Country: None (occurrence: None)
  Receive Date: 20071129
  Receipt Date: 20070711
  Transmission Date: 20080405
  Serious: No
  Sender: FDA-Public Use
  Company Number: US-ABBOTT-07P-163-0374501-00

PATIENT
  Age: 46 Year
  Sex: Female
  Weight: 70.37 kg

DRUGS (3)
  1. MERIDIA [Suspect]
     Indication: WEIGHT CONTROL
     Route: 048
     Dates: start: 20070401
  2. LEVOTHYROXINE SODIUM [Concomitant]
     Indication: THYROIDECTOMY
  3. ESTRATEST H.S. [Concomitant]
     Indication: DRUG USE FOR UNKNOWN INDICATION

REACTIONS (4)
  - GINGIVAL PAIN [None]
  - GINGIVITIS [None]
  - ORAL PAIN [None]
  - SENSITIVITY OF TEETH [None]
